FAERS Safety Report 8881769 (Version 1)
Quarter: 2012Q4

REPORT INFORMATION
  Report Type: 
  Country: CO (occurrence: CO)
  Receive Date: 20121101
  Receipt Date: 20121101
  Transmission Date: 20130627
  Serious: Yes (Hospitalization)
  Sender: FDA-Public Use
  Company Number: CO-ELI_LILLY_AND_COMPANY-CO201210008537

PATIENT
  Age: 76 Year
  Sex: Male

DRUGS (5)
  1. FORTEO [Suspect]
     Indication: OSTEOPOROSIS
     Dosage: 20 ug, qd
     Route: 058
     Dates: start: 20110831
  2. ZOLPIDEM [Concomitant]
  3. CALCIUM CARBONATE W/VITAMIN D      /00944201/ [Concomitant]
     Indication: SUPPLEMENTATION THERAPY
  4. ACLASTA [Concomitant]
  5. FOLIC ACID [Concomitant]

REACTIONS (5)
  - Anaemia [Not Recovered/Not Resolved]
  - Cardiac pacemaker replacement [Not Recovered/Not Resolved]
  - Depressed mood [Not Recovered/Not Resolved]
  - Asthenia [Not Recovered/Not Resolved]
  - Cardiac pacemaker insertion [Not Recovered/Not Resolved]
